FAERS Safety Report 6425120-1 (Version None)
Quarter: 2009Q4

REPORT INFORMATION
  Report Type: 
  Country: None (occurrence: None)
  Receive Date: 20091102
  Receipt Date: 20091102
  Transmission Date: 20100525
  Serious: Yes (Life-Threatening, Hospitalization, Disabling)
  Sender: FDA-Public Use
  Company Number: None

PATIENT
  Sex: Female
  Weight: 64.8644 kg

DRUGS (2)
  1. VENTOLIN [Suspect]
     Indication: ASTHMA
     Dosage: 2 PUFFS 10 TIMES A DAY INHAL
     Route: 055
     Dates: start: 20080101, end: 20091030
  2. PROAIR HFA [Suspect]
     Indication: ASTHMA
     Dosage: 2 PUFFS 10 TIMES A DAY INHAL
     Route: 055
     Dates: start: 20080101, end: 20091030

REACTIONS (1)
  - DRUG INEFFECTIVE [None]
